FAERS Safety Report 9687786 (Version 1)
Quarter: 2013Q4

REPORT INFORMATION
  Report Type: Spontaneous
  Country: GB (occurrence: None)
  Receive Date: 20131112
  Receipt Date: 20131112
  Transmission Date: 20140711
  Serious: Yes (Other)
  Sender: FDA-Public Use
  Company Number: AUR-APL-2013-09184

PATIENT
  Age: 32 Year
  Sex: Male

DRUGS (14)
  1. RIBAVIRIN (RIBAVIRIN) [Suspect]
     Indication: HEPATITIS C
     Dosage: 1 IN 1 D
     Route: 048
     Dates: start: 20130827
  2. VIRAFERON [Suspect]
     Indication: HEPATITIS C
     Route: 058
     Dates: start: 20130827
  3. ZAPONEX (CLOZAPINE) [Suspect]
     Indication: SCHIZOAFFECTIVE DISORDER
     Route: 048
     Dates: start: 20080819, end: 20121001
  4. AMISULPRIDE [Concomitant]
  5. BENZHEXOL (TRIHEXYPHENIDYL) [Concomitant]
  6. COLECALCIFEROL [Concomitant]
  7. FENOFIBRATE [Concomitant]
  8. GLICLAZIDE [Concomitant]
  9. LANSOPRAZOLE [Concomitant]
  10. LITHIUM CARBONATE [Concomitant]
  11. METFORMIN [Concomitant]
  12. OLANZAPINE [Concomitant]
  13. TELAPREVIR [Concomitant]
  14. VENLAFAXINE [Concomitant]

REACTIONS (3)
  - Platelet count decreased [None]
  - Neutropenia [None]
  - Leukopenia [None]
